FAERS Safety Report 6815381-9 (Version None)
Quarter: 2010Q3

REPORT INFORMATION
  Report Type: 
  Country: None (occurrence: None)
  Receive Date: 20100702
  Receipt Date: 20100622
  Transmission Date: 20110219
  Serious: Yes (Other)
  Sender: FDA-Public Use
  Company Number: GXKR2010FR06982

PATIENT
  Age: 76 Year
  Sex: Male

DRUGS (6)
  1. SULFAMETHOXAZOLE AND TRIMETHOPRIM [Suspect]
     Indication: URINARY TRACT INFECTION
     Dosage: 160/800MG 24 HRLY
  2. REPAGLINIDE [Interacting]
     Indication: DIABETES MELLITUS
     Dosage: 1 MG, QID
  3. AMIODARONE [Concomitant]
     Dosage: 200 MG, QD
  4. PERINDOPRIL [Concomitant]
     Dosage: 2 MG, QD
  5. FUROSEMIDE [Concomitant]
     Dosage: 40 MG, QD
  6. ESOMEPRAZOLE MAGNESIUM [Concomitant]
     Dosage: 20 MG, QD

REACTIONS (3)
  - APHASIA [None]
  - DRUG INTERACTION [None]
  - HYPOGLYCAEMIA [None]
